FAERS Safety Report 6506600-7 (Version None)
Quarter: 2009Q4

REPORT INFORMATION
  Report Type: 
  Country: None (occurrence: None)
  Receive Date: 20091221
  Receipt Date: 20091217
  Transmission Date: 20100525
  Serious: Yes (Life-Threatening, Hospitalization, Other)
  Sender: FDA-Public Use
  Company Number: JP-B.I. PHARMACEUTICALS,INC./RIDGEFIELD-2009-BP-14541NB

PATIENT
  Age: 52 Year
  Sex: Male

DRUGS (3)
  1. MOBIC [Suspect]
     Indication: ANALGESIC THERAPY
     Dosage: 10 MG
     Route: 048
     Dates: start: 20060101, end: 20091108
  2. TIGASON / ETRETINATE [Concomitant]
     Dosage: 10 MG
     Route: 048
  3. ADALAT CC [Concomitant]
     Route: 048

REACTIONS (3)
  - CHEST PAIN [None]
  - ELECTROCARDIOGRAM ST SEGMENT ELEVATION [None]
  - VENTRICULAR FIBRILLATION [None]
